FAERS Safety Report 16449670 (Version 1)
Quarter: 2019Q2

REPORT INFORMATION
  Report Type: Spontaneous
  Country: US (occurrence: US)
  Receive Date: 20190619
  Receipt Date: 20190619
  Transmission Date: 20190711
  Serious: No
  Sender: FDA-Public Use
  Company Number: US-ROCHE-2295708

PATIENT
  Sex: Female

DRUGS (21)
  1. AZELASTINE HCL [Concomitant]
     Active Substance: AZELASTINE HYDROCHLORIDE
  2. FOLIC ACID. [Concomitant]
     Active Substance: FOLIC ACID
  3. RUTIN [Concomitant]
     Active Substance: RUTIN
  4. MUCINEX [Concomitant]
     Active Substance: GUAIFENESIN
  5. FUROSEMIDE. [Concomitant]
     Active Substance: FUROSEMIDE
  6. ONDANSETRON [Concomitant]
     Active Substance: ONDANSETRON
  7. ACTEMRA [Suspect]
     Active Substance: TOCILIZUMAB
     Indication: MIGRAINE
  8. MEMANTINE HCL [Concomitant]
     Active Substance: MEMANTINE
  9. PREDNISONE. [Concomitant]
     Active Substance: PREDNISONE
  10. DIOSMIN [Concomitant]
     Active Substance: DIOSMIN
  11. MOVIPREP [ASCORBIC ACID;MACROGOL 3350;POTASSIUM CHLORIDE;SODIUM ASCORB [Concomitant]
  12. CETRIZINE [Concomitant]
     Active Substance: CETIRIZINE HYDROCHLORIDE
  13. ACETYLCARNITINE [Concomitant]
     Active Substance: ACETYLCARNITINE
  14. ACTEMRA [Suspect]
     Active Substance: TOCILIZUMAB
     Indication: RHEUMATOID ARTHRITIS
     Dosage: ONGOING: YES
     Route: 042
     Dates: start: 20180406
  15. BACLOFEN. [Concomitant]
     Active Substance: BACLOFEN
  16. HYDROCORTISONE. [Concomitant]
     Active Substance: HYDROCORTISONE
  17. DEXILANT [Concomitant]
     Active Substance: DEXLANSOPRAZOLE
  18. AMOXICILLIN. [Concomitant]
     Active Substance: AMOXICILLIN
  19. PROVENTIL [Concomitant]
     Active Substance: ALBUTEROL
  20. ESTRADIOL. [Concomitant]
     Active Substance: ESTRADIOL
  21. METHOTREXATE. [Concomitant]
     Active Substance: METHOTREXATE

REACTIONS (1)
  - Sinusitis [Unknown]
